FAERS Safety Report 15861722 (Version 2)
Quarter: 2019Q2

REPORT INFORMATION
  Report Type: Spontaneous
  Country: US (occurrence: US)
  Receive Date: 20190124
  Receipt Date: 20190417
  Transmission Date: 20190711
  Serious: Yes (Other)
  Sender: FDA-Public Use
  Company Number: US-TORRENT-00007498

PATIENT
  Age: 70 Year
  Sex: Female

DRUGS (1)
  1. LOSARTAN. [Suspect]
     Active Substance: LOSARTAN
     Indication: HYPERTENSION
     Dosage: UNKNOWN

REACTIONS (3)
  - Dyspnoea [Unknown]
  - Pulmonary mass [Unknown]
  - Dizziness [Unknown]

NARRATIVE: CASE EVENT DATE: 201811
